FAERS Safety Report 16362206 (Version 1)
Quarter: 2019Q2

REPORT INFORMATION
  Report Type: Spontaneous
  Country: US (occurrence: US)
  Receive Date: 20190528
  Receipt Date: 20190528
  Transmission Date: 20190711
  Serious: Yes (Hospitalization, Other)
  Sender: FDA-Public Use
  Company Number: US-PFIZER INC-2019191466

PATIENT
  Age: 80 Year
  Sex: Male
  Weight: 78.46 kg

DRUGS (7)
  1. RANITIDINE. [Concomitant]
     Active Substance: RANITIDINE
     Indication: GASTROOESOPHAGEAL REFLUX DISEASE
     Dosage: 150 MG, 2X/DAY (DATE STARTED: 1YEAR)
     Dates: start: 2018
  2. PRAVASTATIN. [Concomitant]
     Active Substance: PRAVASTATIN
     Indication: BLOOD CHOLESTEROL ABNORMAL
     Dosage: 40 MG, 1X/DAY (DATE STARTED: 10YEAR)
  3. FINASTERIDE. [Concomitant]
     Active Substance: FINASTERIDE
     Indication: PROSTATIC DISORDER
     Dosage: 5 MG, 1X/DAY (DATE STARTED: 3YEAR)
     Dates: start: 2016
  4. LISINOPRIL. [Concomitant]
     Active Substance: LISINOPRIL
     Indication: HYPERTENSION
     Dosage: 20 MG, 2X/DAY (20 MG ONE IN THE MORNING AND ONE AT NIGHT.) (DATE STARTED: 20YEAR)
  5. PREPARATION H MEDICATED WIPES [Suspect]
     Active Substance: WITCH HAZEL
     Indication: HAEMORRHOIDS
     Dosage: UNK UNK, 1X/DAY
     Dates: end: 20190430
  6. AMLODIPINE [Concomitant]
     Active Substance: AMLODIPINE BESYLATE
     Indication: BLOOD PRESSURE ABNORMAL
     Dosage: 10 MG, 1X/DAY (DATE STARTED: 20YEAR)
     Route: 048
  7. PREPARATION H MEDICATED WIPES [Suspect]
     Active Substance: WITCH HAZEL
     Dosage: UNK

REACTIONS (3)
  - Fungal test positive [Recovered/Resolved]
  - Rash [Recovered/Resolved]
  - Diarrhoea [Recovered/Resolved]

NARRATIVE: CASE EVENT DATE: 20190430
